FAERS Safety Report 12650991 (Version 1)
Quarter: 2016Q3

REPORT INFORMATION
  Report Type: Spontaneous
  Country: US (occurrence: US)
  Receive Date: 20160815
  Receipt Date: 20160815
  Transmission Date: 20161109
  Serious: No
  Sender: FDA-Public Use
  Company Number: US-JAZZ-2016-US-005198

PATIENT
  Sex: Female

DRUGS (22)
  1. ALTACE [Concomitant]
     Active Substance: RAMIPRIL
  2. COREG [Concomitant]
     Active Substance: CARVEDILOL
  3. HYDROCHLOROTHIAZIDE. [Concomitant]
     Active Substance: HYDROCHLOROTHIAZIDE
  4. VITAMIN D [Concomitant]
     Active Substance: CHOLECALCIFEROL
  5. WELLBUTRIN [Concomitant]
     Active Substance: BUPROPION HYDROCHLORIDE
  6. XYREM [Suspect]
     Active Substance: SODIUM OXYBATE
     Dosage: UNKNOWN
     Route: 048
     Dates: start: 201205
  7. MULTIVITAMIN WITH MINERALS [Concomitant]
     Active Substance: MINERALS\VITAMINS
  8. PROBIOTICA [Concomitant]
     Active Substance: PROBIOTICS NOS
  9. XYREM [Suspect]
     Active Substance: SODIUM OXYBATE
     Indication: CATAPLEXY
     Dosage: DOSE ADJUSTMENTS
     Route: 048
  10. ADDERALL [Concomitant]
     Active Substance: AMPHETAMINE ASPARTATE\AMPHETAMINE SULFATE\DEXTROAMPHETAMINE SACCHARATE\DEXTROAMPHETAMINE SULFATE
  11. CALCIUM [Concomitant]
     Active Substance: CALCIUM
  12. COENZYME Q10 [Concomitant]
     Active Substance: UBIDECARENONE
  13. FE [Concomitant]
     Active Substance: IRON
  14. ZOCOR [Concomitant]
     Active Substance: SIMVASTATIN
  15. LYRICA [Concomitant]
     Active Substance: PREGABALIN
  16. ASPIRIN. [Concomitant]
     Active Substance: ASPIRIN
  17. SYNTHROID [Concomitant]
     Active Substance: LEVOTHYROXINE SODIUM
  18. BIOTIN [Concomitant]
     Active Substance: BIOTIN
  19. TUMS [Concomitant]
     Active Substance: CALCIUM CARBONATE
  20. VIVISCAL [Concomitant]
  21. XYREM [Suspect]
     Active Substance: SODIUM OXYBATE
     Indication: NARCOLEPSY
     Dosage: 2.25 G, BID
     Route: 048
     Dates: start: 200502, end: 2005
  22. FLUOXETINE HCL [Concomitant]
     Active Substance: FLUOXETINE HYDROCHLORIDE

REACTIONS (1)
  - Somnambulism [Unknown]
